FAERS Safety Report 25452273 (Version 1)
Quarter: 2025Q2

REPORT INFORMATION
  Report Type: Spontaneous
  Country: ES (occurrence: ES)
  Receive Date: 20250618
  Receipt Date: 20250618
  Transmission Date: 20250717
  Serious: Yes (Other)
  Sender: Alora Pharma
  Company Number: ES-VERTICAL PHARMACEUTICALS-2025ALO02265

PATIENT
  Age: 46 Year
  Sex: Male

DRUGS (4)
  1. ESTRADIOL [Suspect]
     Active Substance: ESTRADIOL
     Indication: Feminisation acquired
     Dosage: 100 MG, 1X/DAY; TRANSDERMAL PATCH
     Route: 062
  2. CYPROTERONE ACETATE [Suspect]
     Active Substance: CYPROTERONE ACETATE
     Indication: Feminisation acquired
     Dosage: 50 MG, 2X/DAY
  3. ACECLOFENAC [Suspect]
     Active Substance: ACECLOFENAC
     Indication: Feminisation acquired
     Dosage: 200 MG, 1X/DAY
  4. DESMOPRESSIN [Suspect]
     Active Substance: DESMOPRESSIN
     Indication: Feminisation acquired
     Dosage: 10 ?G, 1X/DAY
     Route: 045

REACTIONS (3)
  - Meningioma [Recovering/Resolving]
  - Hyponatraemia [Recovering/Resolving]
  - Product use in unapproved indication [Unknown]
